FAERS Safety Report 9205190 (Version 1)
Quarter: 2013Q2

REPORT INFORMATION
  Report Type: Spontaneous
  Country: US (occurrence: US)
  Receive Date: 20130402
  Receipt Date: 20130402
  Transmission Date: 20140414
  Serious: Yes (Hospitalization)
  Sender: FDA-Public Use
  Company Number: US-FRI-1000043920

PATIENT
  Age: 57 Year
  Sex: Male

DRUGS (5)
  1. BYSTOLIC [Suspect]
     Indication: HYPERTENSION
     Dosage: 5 MG
     Dates: start: 20090316, end: 20090322
  2. BYSTOLIC [Suspect]
     Indication: HYPERTENSION
  3. PLAVIX [Concomitant]
  4. BABY ASPIRIN [Concomitant]
  5. PLETAL [Concomitant]

REACTIONS (2)
  - Cerebral hyperperfusion syndrome [Recovered/Resolved]
  - Hypotension [Recovered/Resolved]
